FAERS Safety Report 4368062-8 (Version None)
Quarter: 2004Q2

REPORT INFORMATION
  Report Type: 
  Country: None (occurrence: None)
  Receive Date: 20040527
  Receipt Date: 20040210
  Transmission Date: 20050107
  Serious: No
  Sender: FDA-Public Use
  Company Number: 204669

PATIENT
  Sex: Female

DRUGS (2)
  1. RAPTIVA [Suspect]
     Indication: PSORIASIS
     Dosage: 0.7 MG/KG, SINGLE, SUBCUTANEOUS
     Route: 058
     Dates: start: 20040209, end: 20040209
  2. LEXAPRO [Concomitant]

REACTIONS (2)
  - CHILLS [None]
  - VOMITING [None]
